FAERS Safety Report 6566606-9 (Version None)
Quarter: 2010Q1

REPORT INFORMATION
  Report Type: 
  Country: None (occurrence: None)
  Receive Date: 20100202
  Receipt Date: 20100128
  Transmission Date: 20100710
  Serious: Yes (Other)
  Sender: FDA-Public Use
  Company Number: DE-AMGEN-UK385196

PATIENT
  Sex: Female
  Weight: 57 kg

DRUGS (4)
  1. NPLATE [Suspect]
     Indication: IDIOPATHIC THROMBOCYTOPENIC PURPURA
     Route: 058
     Dates: start: 20090918, end: 20091228
  2. PREDNISOLONE [Concomitant]
     Route: 048
     Dates: start: 20090617, end: 20090901
  3. DEXAMETHASONE [Concomitant]
     Route: 048
     Dates: start: 20090908, end: 20090911
  4. IMMU-G [Concomitant]
     Route: 042
     Dates: start: 20090907

REACTIONS (12)
  - ALOPECIA [None]
  - ASTHENIA [None]
  - DERMATITIS [None]
  - HEADACHE [None]
  - HYPOTHYROIDISM [None]
  - INJURY [None]
  - NASOPHARYNGITIS [None]
  - PLATELET COUNT DECREASED [None]
  - RASH PRURITIC [None]
  - THROMBOCYTOPENIA [None]
  - WEIGHT INCREASED [None]
  - WEIGHT LOSS POOR [None]
